FAERS Safety Report 25356697 (Version 1)
Quarter: 2025Q2

REPORT INFORMATION
  Report Type: Spontaneous
  Country: CN (occurrence: CN)
  Receive Date: 20250526
  Receipt Date: 20250526
  Transmission Date: 20250716
  Serious: Yes (Hospitalization, Disabling)
  Sender: ROCHE
  Company Number: CN-ROCHE-10000293229

PATIENT
  Age: 24 Year
  Sex: Male
  Weight: 96 kg

DRUGS (3)
  1. TOCILIZUMAB [Suspect]
     Active Substance: TOCILIZUMAB
     Indication: Still^s disease
     Route: 058
     Dates: start: 20250310, end: 20250428
  2. PHOSPHOLIPID [Concomitant]
     Active Substance: PHOSPHOLIPID
  3. GLUTATHIONE [Concomitant]
     Active Substance: GLUTATHIONE

REACTIONS (2)
  - Hepatic enzyme increased [Recovering/Resolving]
  - Off label use [Unknown]

NARRATIVE: CASE EVENT DATE: 20250506
